FAERS Safety Report 6104686-5 (Version None)
Quarter: 2009Q1

REPORT INFORMATION
  Report Type: 
  Country: None (occurrence: None)
  Receive Date: 20090303
  Receipt Date: 20090219
  Transmission Date: 20090719
  Serious: Yes (Death)
  Sender: FDA-Public Use
  Company Number: GXKR2009US02150

PATIENT
  Age: 42 Year
  Sex: Male

DRUGS (10)
  1. MYCOPHENOLATE MOFETIL [Suspect]
     Indication: IMMUNOSUPPRESSION
     Dosage: 1.5 G, BID,; 1 G, BID,; 0.75 G, BID,
  2. PREDNISONE TAB [Suspect]
     Indication: IMMUNOSUPPRESSION
     Dosage: 30 MG, BID,; 20 MG/DAY,; 15 MG/DAY,
  3. METHYLPREDNISOLONE 4MG TAB [Suspect]
     Indication: IMMUNOSUPPRESSION
  4. TACROLIMUS [Suspect]
     Indication: IMMUNOSUPPRESSION
     Dosage: 3 MG/DAY WITH GOAL FOR LEVEL 10 2 MG/ML,; 2 MG/DAY,; 2 MG/DAY WITH GOAL LEVEL 6-8 MG/ML,
  5. BASILIXIMAB (BASILIXIMAB) [Suspect]
  6. ANTITHYMOCYTE IMMUNOGLOBULIN(ANTITHYMOCYTE IMMUNOGLOBULIN) [Suspect]
     Indication: IMMUNOSUPPRESSION
  7. ANTIBIOTICS (NO INGREDIENTS/SUBSTANCES) [Concomitant]
  8. LINEZOLID [Concomitant]
  9. CEFEPIME [Concomitant]
  10. ACYCLOVIR [Concomitant]

REACTIONS (13)
  - BACTERAEMIA [None]
  - BRAIN ABSCESS [None]
  - CENTRAL NERVOUS SYSTEM NECROSIS [None]
  - CEREBRAL ASPERGILLOSIS [None]
  - CHORIORETINITIS [None]
  - HAEMORRHAGE INTRACRANIAL [None]
  - LETHARGY [None]
  - LUNG NEOPLASM [None]
  - NERVOUS SYSTEM DISORDER [None]
  - RESPIRATORY FAILURE [None]
  - TREATMENT FAILURE [None]
  - URINARY TRACT INFECTION [None]
  - WOUND INFECTION [None]
